FAERS Safety Report 9032522 (Version 1)
Quarter: 2013Q1

REPORT INFORMATION
  Report Type: Report from Study
  Country: DE (occurrence: DE)
  Receive Date: 20130125
  Receipt Date: 20130125
  Transmission Date: 20140127
  Serious: Yes (Hospitalization, Other)
  Sender: FDA-Public Use
  Company Number: DE-ROCHE-765876

PATIENT
  Age: 69 Year
  Sex: Female
  Weight: 65 kg

DRUGS (11)
  1. RITUXIMAB [Suspect]
     Indication: CHRONIC LYMPHOCYTIC LEUKAEMIA
     Route: 042
  2. RITUXIMAB [Suspect]
     Route: 042
  3. FLUDARABINE [Suspect]
     Indication: CHRONIC LYMPHOCYTIC LEUKAEMIA
     Route: 042
  4. FLUDARABINE [Suspect]
     Dosage: LAST DOSE PRIOR TO SAE : 26/02/2011
     Route: 042
  5. CYCLOPHOSPHAMIDE [Suspect]
     Indication: CHRONIC LYMPHOCYTIC LEUKAEMIA
     Route: 042
  6. CYCLOPHOSPHAMIDE [Suspect]
     Dosage: LAST DOSE PRIOR TO SAE :26/02/2011
     Route: 042
  7. NITRENDIPIN [Concomitant]
     Dosage: FREQUENCY: 1-0-1
     Route: 065
  8. HYDROCHLOROTHIAZIDE [Concomitant]
     Dosage: FREQUENCY: 1-0-0
     Route: 065
  9. ENALAPRIL [Concomitant]
     Dosage: FREQUENCY: 1-0-1
     Route: 065
  10. ALLOPURINOL [Concomitant]
     Dosage: FREQUENCY: 1-0-0
     Route: 065
  11. SIMVASTATIN [Concomitant]
     Dosage: FREQUENCY: 0-0-1
     Route: 065

REACTIONS (3)
  - Renal failure [Recovering/Resolving]
  - Gastroenteritis clostridial [Recovered/Resolved]
  - Diarrhoea [Recovered/Resolved]
